FAERS Safety Report 4462835-9 (Version None)
Quarter: 2004Q3

REPORT INFORMATION
  Report Type: 
  Country: None (occurrence: None)
  Receive Date: 20040927
  Receipt Date: 20040913
  Transmission Date: 20050211
  Serious: Yes (Hospitalization, Other)
  Sender: FDA-Public Use
  Company Number: 208488

PATIENT
  Age: 33 Year
  Sex: Female
  Weight: 49 kg

DRUGS (3)
  1. PULMOZYME [Suspect]
     Indication: CYSTIC FIBROSIS
     Dosage: 2.5 MG, QD, NASAL
     Route: 045
     Dates: start: 19941001, end: 20040803
  2. PULMOZYME [Suspect]
     Indication: CYSTIC FIBROSIS
     Dosage: 2.5 MG, QD, NASAL
     Route: 045
     Dates: start: 20050815
  3. COLIMYCINE (COLISTIN SULFATE) [Concomitant]

REACTIONS (9)
  - ASPIRATION [None]
  - BRONCHITIS [None]
  - CAESAREAN SECTION [None]
  - DRUG EXPOSURE DURING PREGNANCY [None]
  - HAEMOPTYSIS [None]
  - PREGNANCY [None]
  - PREMATURE LABOUR [None]
  - REFUSAL OF TREATMENT BY PATIENT [None]
  - SUPERINFECTION [None]
